FAERS Safety Report 4640261-7 (Version None)
Quarter: 2005Q2

REPORT INFORMATION
  Report Type: 
  Country: None (occurrence: None)
  Receive Date: 20050420
  Receipt Date: 20050110
  Transmission Date: 20051028
  Serious: Yes (Hospitalization, Other)
  Sender: FDA-Public Use
  Company Number: AU-GLAXOSMITHKLINE-B0365059A

PATIENT
  Age: 49 Year
  Sex: Female

DRUGS (5)
  1. FLIXOTIDE [Suspect]
     Indication: ASTHMA EXACERBATION PROPHYLAXIS
     Dosage: 500MG TWICE PER DAY
     Route: 055
     Dates: start: 20010101
  2. CALTRATE [Concomitant]
     Dosage: 600MG TWICE PER DAY
     Route: 065
  3. PREMARIN [Concomitant]
     Dosage: .625MG PER DAY
     Route: 065
  4. FOSAMAX [Concomitant]
     Dosage: 70MG WEEKLY
     Route: 065
  5. OSTELIN (VITAMIN D2) [Concomitant]
     Dosage: 1000U PER DAY
     Route: 065

REACTIONS (15)
  - BACK PAIN [None]
  - CANDIDIASIS [None]
  - CHILLS [None]
  - COUGH [None]
  - CYANOSIS [None]
  - DYSPNOEA [None]
  - FATIGUE [None]
  - HAEMORRHOIDS [None]
  - INSOMNIA [None]
  - MALAISE [None]
  - NASOPHARYNGITIS [None]
  - PHARMACEUTICAL PRODUCT COMPLAINT [None]
  - PNEUMONIA [None]
  - POOR QUALITY DRUG ADMINISTERED [None]
  - PYREXIA [None]
